FAERS Safety Report 19662766 (Version 1)
Quarter: 2021Q3

REPORT INFORMATION
  Report Type: Spontaneous
  Country: US (occurrence: US)
  Receive Date: 20210805
  Receipt Date: 20210805
  Transmission Date: 20211014
  Serious: Yes (Other)
  Sender: FDA-Public Use
  Company Number: US-GENERICUS, INC.-2021GNR00017

PATIENT
  Sex: Female
  Weight: 73.02 kg

DRUGS (1)
  1. TOBRAMYCIN. [Suspect]
     Active Substance: TOBRAMYCIN
     Indication: CYSTIC FIBROSIS
     Dosage: 300 MG/5 ML, 2X/DAY (EVERY 12 HOURS) FOR 28 DAYS ON AND 28 DAYS OFF
     Dates: start: 201907

REACTIONS (2)
  - Bronchitis [Unknown]
  - Dyspnoea [Unknown]
